FAERS Safety Report 16318431 (Version 2)
Quarter: 2019Q3

REPORT INFORMATION
  Report Type: Other
  Country: HU (occurrence: HU)
  Receive Date: 20190516
  Receipt Date: 20190821
  Transmission Date: 20191004
  Serious: Yes (Hospitalization, Other)
  Sender: FDA-Public Use
  Company Number: HU-APOTEX-2019AP013993

PATIENT
  Age: 65 Year
  Sex: Male

DRUGS (8)
  1. PERINDOPRIL [Suspect]
     Active Substance: PERINDOPRIL
     Indication: PRODUCT USED FOR UNKNOWN INDICATION
     Dosage: 5 MG, QD (IN THE MORNING)
     Route: 065
  2. SITAGLIPTIN METFORMIN [Concomitant]
     Active Substance: METFORMIN HYDROCHLORIDE\SITAGLIPTIN PHOSPHATE
     Indication: PRODUCT USED FOR UNKNOWN INDICATION
     Dosage: 2 DF (2 X 1DF IN THE MORNING), QD
     Route: 065
  3. EMPAGLIFLOZIN [Concomitant]
     Active Substance: EMPAGLIFLOZIN
     Indication: PRODUCT USED FOR UNKNOWN INDICATION
     Dosage: 1 DF, QD
     Route: 065
  4. ACETYLSALICYLIC ACID [Concomitant]
     Active Substance: ASPIRIN
     Indication: PRODUCT USED FOR UNKNOWN INDICATION
     Dosage: 100 MG, QD (IN THE EVENING)
     Route: 065
  5. ROSUVASTATIN. [Suspect]
     Active Substance: ROSUVASTATIN
     Indication: PRODUCT USED FOR UNKNOWN INDICATION
     Dosage: 10 MG, QD (IN THE EVENING)
     Route: 065
  6. NEBIVOLOL. [Suspect]
     Active Substance: NEBIVOLOL
     Indication: PRODUCT USED FOR UNKNOWN INDICATION
     Dosage: 2.5 MG, QD (IN THE MORNING)
     Route: 065
  7. DOXAZOSIN 4 [Suspect]
     Active Substance: DOXAZOSIN MESYLATE
     Indication: PRODUCT USED FOR UNKNOWN INDICATION
     Dosage: 4 G, QD (IN THE EVENING)
     Route: 065
  8. ROSUVASTATIN. [Suspect]
     Active Substance: ROSUVASTATIN
     Dosage: 20 MG, QD
     Route: 065

REACTIONS (16)
  - Decreased ventricular preload [Unknown]
  - Blood glucose increased [Unknown]
  - Anaemia [Unknown]
  - Blood pressure fluctuation [Recovered/Resolved]
  - Electrocardiogram abnormal [Unknown]
  - Hepatic lesion [Unknown]
  - Transient ischaemic attack [Unknown]
  - Blood uric acid increased [Unknown]
  - Ischaemia [Unknown]
  - Dyspnoea exertional [Unknown]
  - Myocardial ischaemia [Unknown]
  - Chest discomfort [Recovered/Resolved]
  - Carotid arteriosclerosis [Unknown]
  - Blood cholesterol increased [Unknown]
  - Renal impairment [Unknown]
  - Cardiomegaly [Unknown]
